FAERS Safety Report 5337611-5 (Version None)
Quarter: 2007Q2

REPORT INFORMATION
  Report Type: 
  Country: None (occurrence: None)
  Receive Date: 20070309
  Receipt Date: 20060706
  Transmission Date: 20071010
  Serious: Yes (Other)
  Sender: FDA-Public Use
  Company Number: US200605005280

PATIENT
  Sex: Female

DRUGS (1)
  1. GEMZAR [Suspect]
     Indication: OVARIAN CANCER

REACTIONS (3)
  - HAEMOLYTIC URAEMIC SYNDROME [None]
  - PULMONARY OEDEMA [None]
  - RENAL FAILURE [None]
